FAERS Safety Report 15417813 (Version 1)
Quarter: 2018Q4

REPORT INFORMATION
  Report Type: Report from Study
  Country: FR (occurrence: FR)
  Receive Date: 20180924
  Receipt Date: 20180924
  Transmission Date: 20190204
  Serious: Yes (Hospitalization)
  Sender: FDA-Public Use
  Company Number: FR-ALNYLAM PHARMACEUTICALS, INC.-ALN-2018-000103

PATIENT
  Age: 66 Year
  Sex: Male
  Weight: 91 kg

DRUGS (16)
  1. ALN-TTR02 [Suspect]
     Active Substance: PATISIRAN SODIUM
     Indication: HEREDITARY NEUROPATHIC AMYLOIDOSIS
     Dosage: 0.3 MILLIGRAM/KILOGRAM, Q3W
     Route: 042
     Dates: start: 20150703
  2. VERSATIS [Concomitant]
     Active Substance: LIDOCAINE
     Indication: NEURALGIA
     Dosage: 1 PATCH AS NEEDED (PRN)
     Route: 061
     Dates: start: 20170728
  3. AUGMENTIN [Concomitant]
     Active Substance: AMOXICILLIN\CLAVULANATE POTASSIUM
     Indication: THERMAL BURN
     Dosage: UNK
  4. DEXAMETHASONE. [Suspect]
     Active Substance: DEXAMETHASONE
     Indication: PROPHYLAXIS
     Dosage: 10 MILLIGRAM, Q3W
     Route: 042
     Dates: start: 20150703
  5. LAMALINE (ACETAMINOPHEN\CAFFEINE\OPIUM) [Concomitant]
     Active Substance: ACETAMINOPHEN\CAFFEINE\OPIUM
     Indication: NEURALGIA
     Dosage: 1 TABLET AS NEEDED (PRN)
     Route: 048
     Dates: start: 201412
  6. PREGABALINE [Concomitant]
     Active Substance: PREGABALIN
     Indication: NEURALGIA
     Dosage: 300 MILLIGRAM, QD
     Route: 048
     Dates: start: 20170515
  7. PARACETAMOL [Suspect]
     Active Substance: ACETAMINOPHEN
     Indication: PROPHYLAXIS
     Dosage: 500 MILLIGRAM, Q3W
     Route: 048
     Dates: start: 20150703
  8. DEXCHLORPHENIRAMINE [Suspect]
     Active Substance: DEXCHLORPHENIRAMINE
     Indication: PROPHYLAXIS
     Dosage: 5 MILLIGRAM, Q3W
     Route: 042
     Dates: start: 20150703
  9. VITAMIN A [Suspect]
     Active Substance: VITAMIN A
     Indication: VITAMIN A DEFICIENCY
     Dosage: 2500 INTERNATIONAL UNIT
     Route: 048
     Dates: start: 20150625, end: 20171222
  10. RANITIDINE. [Suspect]
     Active Substance: RANITIDINE
     Indication: PROPHYLAXIS
     Dosage: 50 MILLIGRAM, Q3W
     Route: 042
     Dates: start: 20150703
  11. CHOLECALCIFEROL [Concomitant]
     Active Substance: CHOLECALCIFEROL
     Indication: OSTEOPOROSIS PROPHYLAXIS
     Dosage: 10000 INTERNATIONAL UNIT, 1 PER 6 MONTHS
     Route: 048
     Dates: start: 20160219, end: 20180406
  12. EFFERALGAN [Concomitant]
     Active Substance: ACETAMINOPHEN
     Indication: NEURALGIA
     Dosage: 1000 MILLIGRAM, AS NEEDED (PRN)
     Route: 048
     Dates: start: 201412
  13. PARACETAMOL CODEINE [Concomitant]
     Active Substance: ACETAMINOPHEN\CODEINE PHOSPHATE
     Indication: NEURALGIA
     Dosage: 1 TABLET, AS NEEDEN (PRN)
     Route: 048
     Dates: start: 201412
  14. TAHOR [Concomitant]
     Active Substance: ATORVASTATIN CALCIUM
     Indication: HYPERTRIGLYCERIDAEMIA
     Dosage: 10 MILLIGRAM, QD
     Dates: start: 20180618
  15. VITAMIN A [Suspect]
     Active Substance: VITAMIN A
     Indication: PROPHYLAXIS
     Dosage: 2500 INTERNATIONAL UNITS, QD
     Route: 048
     Dates: start: 20171223
  16. CHOLECALCIFEROL [Concomitant]
     Active Substance: CHOLECALCIFEROL
     Dosage: 10000 INTERNATIONAL UNITS,  EVERY MONTH
     Route: 048
     Dates: start: 20180406

REACTIONS (1)
  - Psychomotor skills impaired [Not Recovered/Not Resolved]

NARRATIVE: CASE EVENT DATE: 20180625
